FAERS Safety Report 14605741 (Version 1)
Quarter: 2018Q1

REPORT INFORMATION
  Report Type: Spontaneous
  Country: BE (occurrence: BE)
  Receive Date: 20180306
  Receipt Date: 20180306
  Transmission Date: 20180509
  Serious: Yes (Other)
  Sender: FDA-Public Use
  Company Number: BE-ASTRAZENECA-2018SE25763

PATIENT

DRUGS (5)
  1. OMEPRAZOLE. [Suspect]
     Active Substance: OMEPRAZOLE
     Route: 048
     Dates: start: 20171030
  2. ZYLORIC [Suspect]
     Active Substance: ALLOPURINOL
     Route: 065
  3. ATORVASTATIN CALCIUM. [Suspect]
     Active Substance: ATORVASTATIN CALCIUM
     Route: 065
  4. ASAFLOW [Suspect]
     Active Substance: ASPIRIN
     Route: 065
  5. MAALOX ANTACID [Suspect]
     Active Substance: ALUMINUM HYDROXIDE\DIMETHICONE\MAGNESIUM HYDROXIDE
     Route: 048

REACTIONS (2)
  - Hepatitis toxic [Unknown]
  - Yellow skin [Unknown]

NARRATIVE: CASE EVENT DATE: 20171101
